FAERS Safety Report 10673018 (Version 1)
Quarter: 2014Q4

REPORT INFORMATION
  Report Type: Spontaneous
  Country: US (occurrence: US)
  Receive Date: 20141223
  Receipt Date: 20141223
  Transmission Date: 20150529
  Serious: No
  Sender: FDA-Public Use
  Company Number: US-AMGEN-USASP2014099339

PATIENT
  Age: 30 Year
  Sex: Female

DRUGS (1)
  1. ENBREL [Suspect]
     Active Substance: ETANERCEPT
     Indication: PSORIASIS
     Dosage: 50 MG, QMO
     Route: 065
     Dates: start: 20090609

REACTIONS (3)
  - Inappropriate schedule of drug administration [Not Recovered/Not Resolved]
  - Skin plaque [Not Recovered/Not Resolved]
  - Expired product administered [Not Recovered/Not Resolved]

NARRATIVE: CASE EVENT DATE: 2009
